FAERS Safety Report 15214102 (Version 1)
Quarter: 2018Q3

REPORT INFORMATION
  Report Type: Spontaneous
  Country: US (occurrence: US)
  Receive Date: 20180730
  Receipt Date: 20180730
  Transmission Date: 20181010
  Serious: No
  Sender: FDA-Public Use
  Company Number: US-SA-2018SA194628

PATIENT
  Age: 62 Year
  Sex: Male

DRUGS (3)
  1. SIMPONI ARIA [Concomitant]
     Active Substance: GOLIMUMAB
     Route: 065
  2. ARAVA [Suspect]
     Active Substance: LEFLUNOMIDE
     Route: 065
  3. HUMIRA [Concomitant]
     Active Substance: ADALIMUMAB
     Route: 065

REACTIONS (2)
  - Injection site reaction [Unknown]
  - Drug ineffective [Unknown]
